FAERS Safety Report 18968012 (Version 1)
Quarter: 2021Q1

REPORT INFORMATION
  Report Type: Spontaneous
  Country: US (occurrence: US)
  Receive Date: 20210304
  Receipt Date: 20210304
  Transmission Date: 20210420
  Serious: No
  Sender: FDA-Public Use
  Company Number: None

PATIENT
  Age: 67 Year
  Sex: Male
  Weight: 103.95 kg

DRUGS (15)
  1. METFORMIN 500MG [Concomitant]
     Active Substance: METFORMIN HYDROCHLORIDE
  2. THIAMINE 100MG [Concomitant]
  3. ELIQUIS [Concomitant]
     Active Substance: APIXABAN
  4. CAPECITABINE. [Suspect]
     Active Substance: CAPECITABINE
     Indication: OESOPHAGEAL CARCINOMA
     Route: 048
     Dates: start: 20200905
  5. FAMOTIDINE 20MG [Concomitant]
     Active Substance: FAMOTIDINE
  6. FLUTICASONE 50MCG/ACT [Concomitant]
  7. ATORVASTATIN 80MG [Concomitant]
     Active Substance: ATORVASTATIN
  8. MAGNESIUM OXIDE 400MG [Concomitant]
     Active Substance: MAGNESIUM OXIDE
  9. NEURONTIN 100MG [Concomitant]
  10. MULTIVITAMIN [Concomitant]
     Active Substance: VITAMINS
  11. NITROGLYCERIN 0.4MG [Concomitant]
  12. CARDIZEM 90MG [Concomitant]
  13. ASPIRIN 81MG [Concomitant]
     Active Substance: ASPIRIN
  14. ARTIFICIAL TEARS 83?15% [Concomitant]
  15. PROCHLORPERAZINE 10MG [Concomitant]

REACTIONS (1)
  - Decreased appetite [None]

NARRATIVE: CASE EVENT DATE: 20210304
